FAERS Safety Report 15036399 (Version 1)
Quarter: 2018Q2

REPORT INFORMATION
  Report Type: Spontaneous
  Country: US (occurrence: US)
  Receive Date: 20180620
  Receipt Date: 20180620
  Transmission Date: 20180711
  Serious: Yes (Death)
  Sender: FDA-Public Use
  Company Number: US-ROCHE-2142413

PATIENT
  Sex: Male

DRUGS (8)
  1. ESBRIET [Suspect]
     Active Substance: PIRFENIDONE
     Indication: IDIOPATHIC PULMONARY FIBROSIS
     Dosage: 3 CAPSULES (801 MG);
     Route: 048
     Dates: start: 20180130, end: 2018
  2. SOTALOL. [Concomitant]
     Active Substance: SOTALOL
  3. OXAZEPAM. [Concomitant]
     Active Substance: OXAZEPAM
  4. LORATADINE. [Concomitant]
     Active Substance: LORATADINE
  5. SPIRIVA [Concomitant]
     Active Substance: TIOTROPIUM BROMIDE MONOHYDRATE
  6. PREDNISONE. [Concomitant]
     Active Substance: PREDNISONE
  7. DOXYCYCLINE. [Concomitant]
     Active Substance: DOXYCYCLINE
  8. FLUTICASONE. [Concomitant]
     Active Substance: FLUTICASONE

REACTIONS (1)
  - Death [Fatal]
